FAERS Safety Report 7902231-2 (Version None)
Quarter: 2011Q4

REPORT INFORMATION
  Report Type: 
  Country: None (occurrence: None)
  Receive Date: 20111108
  Receipt Date: 20110727
  Transmission Date: 20120403
  Serious: Yes (Other)
  Sender: FDA-Public Use
  Company Number: US-PFIZER INC-2011171384

PATIENT
  Age: 6 Year

DRUGS (2)
  1. GABAPENTIN [Concomitant]
     Dosage: UNK
  2. DEPO-MEDROL [Suspect]
     Dosage: UNK
     Dates: start: 20110701, end: 20110701

REACTIONS (2)
  - INCORRECT ROUTE OF DRUG ADMINISTRATION [None]
  - CONVULSION [None]
